FAERS Safety Report 24466497 (Version 1)
Quarter: 2024Q4

REPORT INFORMATION
  Report Type: Spontaneous
  Country: US (occurrence: US)
  Receive Date: 20241018
  Receipt Date: 20241018
  Transmission Date: 20250115
  Serious: Yes (Hospitalization, Other)
  Sender: AMGEN
  Company Number: US-AMGEN-USASP2024202100

PATIENT
  Sex: Male

DRUGS (4)
  1. PREDNISONE [Suspect]
     Active Substance: PREDNISONE
     Indication: Arthritis reactive
     Dosage: 40 MILLIGRAM, QD
     Route: 065
  2. PREDNISONE [Suspect]
     Active Substance: PREDNISONE
     Dosage: 20 MILLIGRAM (TAPERED DOWN)
     Route: 065
  3. RITUXIMAB [Suspect]
     Active Substance: RITUXIMAB
     Indication: VEXAS syndrome
     Dosage: UNK
     Route: 065
  4. SULFASALAZINE [Concomitant]
     Active Substance: SULFASALAZINE
     Indication: Arthritis reactive
     Dosage: UNK
     Route: 065

REACTIONS (7)
  - Lymphadenopathy mediastinal [Recovered/Resolved]
  - Bicytopenia [Unknown]
  - VEXAS syndrome [Recovering/Resolving]
  - Anaemia [Not Recovered/Not Resolved]
  - Marrow hyperplasia [Unknown]
  - Oedema [Not Recovered/Not Resolved]
  - Off label use [Unknown]
